FAERS Safety Report 8336566-9 (Version None)
Quarter: 2012Q2

REPORT INFORMATION
  Report Type: 
  Country: None (occurrence: None)
  Receive Date: 20120501
  Receipt Date: 20120418
  Transmission Date: 20120825
  Serious: Yes (Other)
  Sender: FDA-Public Use
  Company Number: USA/USA/12/0024041

PATIENT
  Age: 29 Year
  Sex: Female

DRUGS (5)
  1. NIMODIPINE [Suspect]
     Indication: ANEURYSM RUPTURED
     Dosage: UNKNOWN
  2. VANCOMYCIN HYDROCHLORIDE [Concomitant]
  3. AZTREONAM [Suspect]
     Indication: ANEURYSM RUPTURED
     Dosage: UNKNOWN
  4. LEVETIRACETAM [Suspect]
     Indication: ANEURYSM RUPTURED
     Dosage: UNKNOWN
  5. CLINDAMYCIN HYDROCHLORIDE [Suspect]
     Indication: ANEURYSM RUPTURED
     Dosage: UNKNOWN

REACTIONS (3)
  - CAESAREAN SECTION [None]
  - MATERNAL EXPOSURE DURING PREGNANCY [None]
  - PREMATURE DELIVERY [None]
